FAERS Safety Report 8650910 (Version 4)
Quarter: 2013Q1

REPORT INFORMATION
  Report Type: Report from Study
  Country: JP (occurrence: JP)
  Receive Date: 20120705
  Receipt Date: 20130125
  Transmission Date: 20140127
  Serious: Yes (Hospitalization)
  Sender: FDA-Public Use
  Company Number: JP-B.I. PHARMACEUTICALS,INC./RIDGEFIELD-2012-BP-14743NB

PATIENT
  Age: 69 Year
  Sex: Male
  Weight: 81 kg

DRUGS (8)
  1. PRAZAXA [Suspect]
     Indication: THROMBOSIS PROPHYLAXIS
     Dosage: 220 MG
     Route: 048
     Dates: start: 20120410, end: 20120725
  2. LANIRAPID [Concomitant]
     Indication: ATRIAL FIBRILLATION
     Dosage: 0.15 MG
     Route: 048
  3. ARTIST [Concomitant]
     Dosage: 20 MG
     Route: 048
  4. BAYASPIRIN [Concomitant]
     Dosage: 100 MG
     Route: 048
  5. LASIX [Concomitant]
     Dosage: 10 MG
     Route: 048
  6. ZYLORIC [Concomitant]
     Dosage: 100 MG
     Route: 048
  7. TAKEPRON [Concomitant]
     Indication: PROPHYLAXIS
     Dosage: 15 MG
     Route: 048
  8. HERBESSER R [Concomitant]
     Dosage: 200 MG
     Route: 048

REACTIONS (2)
  - Laryngeal oedema [Recovered/Resolved]
  - Laryngeal oedema [Recovered/Resolved]
